FAERS Safety Report 21022010 (Version 1)
Quarter: 2022Q2

REPORT INFORMATION
  Report Type: Spontaneous
  Country: KR (occurrence: KR)
  Receive Date: 20220629
  Receipt Date: 20220629
  Transmission Date: 20220721
  Serious: Yes (Other)
  Sender: FDA-Public Use
  Company Number: KR-009507513-2206KOR008405

PATIENT
  Age: 68 Year
  Sex: Female
  Weight: 64 kg

DRUGS (8)
  1. INVANZ [Suspect]
     Active Substance: ERTAPENEM SODIUM
     Indication: Urinary tract infection
     Dosage: DOSE: 1 G, FREQUENCY: 1/DAY
     Route: 042
     Dates: start: 20210628, end: 20210630
  2. ZOYLEX [ACICLOVIR] [Concomitant]
     Indication: Prophylaxis
     Dosage: 325 MILLIGRAM, BID
     Route: 042
     Dates: start: 20210624, end: 20210714
  3. ALLOPURINOL [Concomitant]
     Active Substance: ALLOPURINOL
     Indication: Myeloproliferative neoplasm
     Dosage: 100 MILLIGRAM, TID
     Route: 048
     Dates: start: 20210625, end: 20210629
  4. THYMOGLOBULINE [Concomitant]
     Active Substance: LAPINE T-LYMPHOCYTE IMMUNE GLOBULIN
     Indication: Myeloproliferative neoplasm
     Dosage: 82.88 MILLIGRAM, QD
     Route: 042
     Dates: start: 20210628, end: 20210629
  5. FLUDARA [Concomitant]
     Active Substance: FLUDARABINE PHOSPHATE
     Indication: Myeloproliferative neoplasm
     Dosage: 51 MILLIGRAM, QD
     Route: 042
     Dates: start: 20210625, end: 20210629
  6. MYCAMINE [Concomitant]
     Active Substance: MICAFUNGIN SODIUM
     Indication: Prophylaxis
     Dosage: 50 MILLIGRAM, QD
     Route: 042
     Dates: start: 20210624, end: 20210714
  7. MECKOOL [Concomitant]
     Indication: Nausea
     Dosage: 10 MILLIGRAM, TID
     Route: 042
     Dates: start: 20210624, end: 20210629
  8. ATIVAN [Concomitant]
     Active Substance: LORAZEPAM
     Indication: Vomiting
     Dosage: 1 MILLIGRAM, QD
     Route: 042
     Dates: start: 20210628, end: 20210629

REACTIONS (3)
  - Febrile neutropenia [Not Recovered/Not Resolved]
  - Diarrhoea [Not Recovered/Not Resolved]
  - Bacteriuria [Not Recovered/Not Resolved]

NARRATIVE: CASE EVENT DATE: 20210601
